FAERS Safety Report 24838320 (Version 3)
Quarter: 2025Q1

REPORT INFORMATION
  Report Type: Spontaneous
  Country: US (occurrence: US)
  Receive Date: 20250113
  Receipt Date: 20250320
  Transmission Date: 20250409
  Serious: No
  Sender: PFIZER
  Company Number: US-PFIZER INC-202500003556

PATIENT
  Age: 46 Year
  Sex: Male
  Weight: 86.18 kg

DRUGS (1)
  1. TESTOSTERONE CYPIONATE [Suspect]
     Active Substance: TESTOSTERONE CYPIONATE
     Indication: Blood testosterone decreased
     Dosage: 0.35 ML, 2X/WEEK (0.35 ML INTRAMUSCULAR INJECTION TWICE A WEEK)
     Route: 030
     Dates: start: 2022, end: 202501

REACTIONS (4)
  - Poor quality product administered [Recovered/Resolved]
  - Product deposit [Recovered/Resolved]
  - Liquid product physical issue [Recovered/Resolved]
  - Headache [Recovered/Resolved]

NARRATIVE: CASE EVENT DATE: 20240101
